FAERS Safety Report 6075357-9 (Version None)
Quarter: 2009Q1

REPORT INFORMATION
  Report Type: 
  Country: None (occurrence: None)
  Receive Date: 20090212
  Receipt Date: 20090203
  Transmission Date: 20090719
  Serious: Yes (Other)
  Sender: FDA-Public Use
  Company Number: US-ALLERGAN-0901326US

PATIENT
  Sex: Female

DRUGS (1)
  1. ZYMAR [Suspect]
     Indication: CORNEAL ABRASION
     Dosage: UNK, QID
     Route: 047
     Dates: start: 20090101, end: 20090101

REACTIONS (2)
  - ASTIGMATISM [None]
  - VISUAL ACUITY REDUCED [None]
